FAERS Safety Report 7649851 (Version 3)
Quarter: 2015Q4

REPORT INFORMATION
  Report Type: Report from Study
  Country: CA (occurrence: CA)
  Receive Date: 20101029
  Receipt Date: 20151112
  Transmission Date: 20160305
  Serious: Yes (Other)
  Sender: FDA-Public Use
  Company Number: PHHY2010CA70220

PATIENT
  Sex: Female

DRUGS (5)
  1. ACLASTA [Suspect]
     Active Substance: ZOLEDRONIC ACID
     Dosage: 5 MG, UNK
     Route: 042
     Dates: start: 20110519
  2. ZOLEDRONATE [Suspect]
     Active Substance: ZOLEDRONIC ACID
     Indication: PRODUCT USED FOR UNKNOWN INDICATION
     Dosage: UNK
     Route: 065
     Dates: start: 201509
  3. ACLASTA [Suspect]
     Active Substance: ZOLEDRONIC ACID
     Indication: OSTEOPOROSIS
     Dosage: 5 MG, UNK
     Route: 042
     Dates: start: 20090305
  4. ACLASTA [Suspect]
     Active Substance: ZOLEDRONIC ACID
     Dosage: 5 MG, UNK
     Route: 042
     Dates: start: 20140304, end: 20140304
  5. ACLASTA [Suspect]
     Active Substance: ZOLEDRONIC ACID
     Dosage: 5 MG, UNK
     Route: 042
     Dates: start: 20120608

REACTIONS (13)
  - Feeling cold [Unknown]
  - Vomiting [Unknown]
  - Dysphonia [Unknown]
  - General physical health deterioration [Unknown]
  - Anxiety [Unknown]
  - Speech disorder [Unknown]
  - Stress [Unknown]
  - Somnolence [Unknown]
  - Drug ineffective [Unknown]
  - Emotional disorder [Unknown]
  - Tooth disorder [Unknown]
  - Pyrexia [Unknown]
  - Malaise [Unknown]
